FAERS Safety Report 14244618 (Version 1)
Quarter: 2017Q4

REPORT INFORMATION
  Report Type: Spontaneous
  Country: PT (occurrence: PT)
  Receive Date: 20171201
  Receipt Date: 20171201
  Transmission Date: 20180321
  Serious: Yes (Hospitalization, Other)
  Sender: FDA-Public Use
  Company Number: PT-ABBVIE-17P-130-2176751-00

PATIENT
  Age: 41 Year
  Sex: Female

DRUGS (2)
  1. ADALIMUMAB [Suspect]
     Active Substance: ADALIMUMAB
     Route: 065
  2. ADALIMUMAB [Suspect]
     Active Substance: ADALIMUMAB
     Indication: PRODUCT USED FOR UNKNOWN INDICATION
     Route: 065

REACTIONS (12)
  - Decreased activity [Recovering/Resolving]
  - Rash [Recovering/Resolving]
  - Antinuclear antibody positive [Unknown]
  - Muscular weakness [Recovering/Resolving]
  - Blood creatine phosphokinase increased [Unknown]
  - Gastrointestinal disorder [Recovering/Resolving]
  - Myalgia [Recovering/Resolving]
  - Drug effect decreased [Recovering/Resolving]
  - Dermatomyositis [Recovering/Resolving]
  - Eyelid rash [Recovering/Resolving]
  - Muscle injury [Recovering/Resolving]
  - Fatigue [Recovering/Resolving]
